FAERS Safety Report 6489582-6 (Version None)
Quarter: 2009Q4

REPORT INFORMATION
  Report Type: 
  Country: None (occurrence: None)
  Receive Date: 20091210
  Receipt Date: 20091123
  Transmission Date: 20100525
  Serious: Yes (Other)
  Sender: FDA-Public Use
  Company Number: RU-GENENTECH-294893

PATIENT
  Sex: Female
  Weight: 70 kg

DRUGS (3)
  1. MABTHERA [Suspect]
     Indication: RHEUMATOID ARTHRITIS
     Dosage: 1000 MG, Q2W
     Route: 042
     Dates: start: 20071227
  2. METHOTREXATE [Suspect]
     Indication: RHEUMATOID ARTHRITIS
  3. GLUCOCORTICOID [Suspect]
     Indication: RHEUMATOID ARTHRITIS

REACTIONS (3)
  - ERYSIPELAS [None]
  - LEUKOPENIA [None]
  - PNEUMONIA [None]
